FAERS Safety Report 4449921-4 (Version None)
Quarter: 2004Q3

REPORT INFORMATION
  Report Type: 
  Country: None (occurrence: None)
  Receive Date: 20040915
  Receipt Date: 20040909
  Transmission Date: 20050211
  Serious: Yes (Hospitalization)
  Sender: FDA-Public Use
  Company Number: CA-GLAXOSMITHKLINE-A0525374A

PATIENT
  Age: 52 Year
  Sex: Male

DRUGS (4)
  1. VENTOLIN [Suspect]
     Indication: ASTHMA
     Dosage: 21PUFF PER DAY
     Route: 055
  2. METFORMIN HCL [Concomitant]
     Route: 048
  3. HYDROCHLOROTHIAZIDE [Concomitant]
     Route: 048
  4. AVAPRO [Concomitant]
     Route: 048

REACTIONS (2)
  - PRESCRIBED OVERDOSE [None]
  - SYNCOPE [None]
